FAERS Safety Report 14364013 (Version 4)
Quarter: 2018Q2

REPORT INFORMATION
  Report Type: Report from Study
  Country: US (occurrence: US)
  Receive Date: 20180108
  Receipt Date: 20180409
  Transmission Date: 20180711
  Serious: Yes (Death, Life-Threatening, Hospitalization, Disabling, Other)
  Sender: FDA-Public Use
  Company Number: US-ASTRAZENECA-2017SF28992

PATIENT
  Age: 17794 Day
  Sex: Female

DRUGS (14)
  1. ACETAMINOPHEN. [Concomitant]
     Active Substance: ACETAMINOPHEN
     Indication: RENAL COLIC
     Dosage: 500.0MG AS REQUIRED
     Route: 048
     Dates: start: 20170929
  2. COQ10 [Concomitant]
     Active Substance: UBIDECARENONE
     Indication: HYPERTENSION
     Route: 048
     Dates: start: 20171115
  3. ALTEPLASE. [Concomitant]
     Active Substance: ALTEPLASE
     Indication: PROPHYLAXIS
     Dosage: 2.0MG AS REQUIRED
     Route: 042
  4. HERBAL NOS [Concomitant]
     Active Substance: HERBALS
     Indication: NUTRITIONAL SUPPLEMENTATION
     Dosage: 35 G, DAILY, INCLUDING ELEUTHERO, ASHWAGANDA, DANDELION ROOT, GOTU KOLA, HAWTHORN BERRY
     Route: 048
     Dates: start: 20171121
  5. RANITIDINE. [Concomitant]
     Active Substance: RANITIDINE
     Indication: GASTROOESOPHAGEAL REFLUX DISEASE
     Route: 048
     Dates: start: 20171207
  6. PROCHLORPERAZINE. [Concomitant]
     Active Substance: PROCHLORPERAZINE
     Indication: NAUSEA
     Dosage: 10.0MG AS REQUIRED
     Route: 048
     Dates: start: 20171019
  7. CYANOCOBALAMIN. [Concomitant]
     Active Substance: CYANOCOBALAMIN
     Indication: ASTHENIA
     Route: 048
  8. OMEPRAZOL [Concomitant]
     Active Substance: OMEPRAZOLE
     Indication: GASTROOESOPHAGEAL REFLUX DISEASE
     Route: 048
     Dates: start: 20171213
  9. AZD2171 [Suspect]
     Active Substance: CEDIRANIB
     Indication: OVARIAN CANCER RECURRENT
     Route: 048
     Dates: start: 20171019, end: 20171211
  10. PROCHLORPERAZINE. [Concomitant]
     Active Substance: PROCHLORPERAZINE
     Indication: VOMITING
     Dosage: 10.0MG AS REQUIRED
     Route: 048
     Dates: start: 20171019
  11. LISINOPRIL. [Concomitant]
     Active Substance: LISINOPRIL
     Indication: HYPERTENSION
     Route: 048
     Dates: start: 20171122
  12. AZD2281 [Suspect]
     Active Substance: OLAPARIB
     Indication: OVARIAN CANCER RECURRENT
     Route: 048
     Dates: start: 20171019, end: 20171212
  13. IBUPROFEN. [Concomitant]
     Active Substance: IBUPROFEN
     Indication: RENAL COLIC
     Dosage: 400.0MG AS REQUIRED
     Route: 048
     Dates: start: 20171019
  14. PERCOCET [Concomitant]
     Active Substance: ACETAMINOPHEN\OXYCODONE HYDROCHLORIDE
     Indication: RENAL COLIC
     Dosage: 5.0MG AS REQUIRED
     Route: 048
     Dates: start: 20170929

REACTIONS (3)
  - Cholecystitis acute [Recovered/Resolved]
  - Blood bilirubin increased [Not Recovered/Not Resolved]
  - Drug-induced liver injury [Not Recovered/Not Resolved]

NARRATIVE: CASE EVENT DATE: 20171214
